FAERS Safety Report 20493938 (Version 1)
Quarter: 2022Q1

REPORT INFORMATION
  Report Type: Spontaneous
  Country: FR (occurrence: FR)
  Receive Date: 20220221
  Receipt Date: 20220221
  Transmission Date: 20220423
  Serious: No
  Sender: FDA-Public Use
  Company Number: FR-LUPIN PHARMACEUTICALS INC.-2022-02121

PATIENT
  Age: 51 Year
  Sex: Female

DRUGS (4)
  1. DULOXETINE [Suspect]
     Active Substance: DULOXETINE
     Indication: Depression
     Dosage: UNK
     Route: 065
  2. ESKETAMINE [Suspect]
     Active Substance: ESKETAMINE
     Indication: Depression
     Dosage: 84 MG, FOR 4 WEEKS
     Route: 065
  3. ESKETAMINE [Suspect]
     Active Substance: ESKETAMINE
     Dosage: 84 MG, EVERY 2 WEEKS
     Route: 065
  4. AMITRIPTYLINE [Suspect]
     Active Substance: AMITRIPTYLINE
     Indication: Depression
     Dosage: UNK
     Route: 065

REACTIONS (1)
  - Hypertension [Unknown]
